FAERS Safety Report 6979922-3 (Version None)
Quarter: 2010Q3

REPORT INFORMATION
  Report Type: 
  Country: None (occurrence: None)
  Receive Date: 20100914
  Receipt Date: 20100903
  Transmission Date: 20110219
  Serious: Yes (Hospitalization)
  Sender: FDA-Public Use
  Company Number: US-US-EMD SERONO, INC.-7016741

PATIENT
  Sex: Male

DRUGS (1)
  1. REBIF [Suspect]
     Indication: PRODUCT USED FOR UNKNOWN INDICATION
     Route: 058
     Dates: start: 20090108

REACTIONS (5)
  - BRAIN NEOPLASM [None]
  - CENTRAL NERVOUS SYSTEM LESION [None]
  - CEREBROVASCULAR ACCIDENT [None]
  - HEADACHE [None]
  - MALAISE [None]
